FAERS Safety Report 15650603 (Version 2)
Quarter: 2018Q4

REPORT INFORMATION
  Report Type: Report from Study
  Country: JP (occurrence: JP)
  Receive Date: 20181123
  Receipt Date: 20181207
  Transmission Date: 20190205
  Serious: Yes (Hospitalization)
  Sender: FDA-Public Use
  Company Number: JP-AMGEN-JPNCT2017055129

PATIENT
  Age: 78 Year
  Sex: Male
  Weight: 62.7 kg

DRUGS (61)
  1. PANITUMUMAB [Suspect]
     Active Substance: PANITUMUMAB
     Dosage: 370 MG, Q2WK
     Route: 041
     Dates: start: 20170731, end: 20170821
  2. OXALIPLATIN. [Concomitant]
     Active Substance: OXALIPLATIN
     Dosage: 50 MG/M2, Q2WEEKS
     Route: 041
     Dates: start: 20170925, end: 20170925
  3. OXALIPLATIN. [Concomitant]
     Active Substance: OXALIPLATIN
     Dosage: 50 MG/M2, Q2WEEKS
     Route: 041
     Dates: start: 20180730, end: 20180730
  4. FLUOROURACIL. [Concomitant]
     Active Substance: FLUOROURACIL
     Indication: COLON CANCER
     Dosage: 650 MG, Q2WEEKS
     Route: 040
     Dates: start: 20170112, end: 20170126
  5. FLUOROURACIL. [Concomitant]
     Active Substance: FLUOROURACIL
     Dosage: 4000 MG, Q2WEEKS
     Route: 041
     Dates: start: 20170112, end: 20170126
  6. FLUOROURACIL. [Concomitant]
     Active Substance: FLUOROURACIL
     Dosage: 3300 MG, Q2WEEKS
     Route: 041
     Dates: start: 20170731, end: 20170821
  7. FLUOROURACIL. [Concomitant]
     Active Substance: FLUOROURACIL
     Dosage: 3300 MG, Q2WEEKS
     Route: 041
     Dates: start: 20180122, end: 20180122
  8. FLUOROURACIL. [Concomitant]
     Active Substance: FLUOROURACIL
     Dosage: 325 MG, Q2WK
     Route: 041
     Dates: start: 20180122, end: 20180122
  9. MUCOPOLYSACCHARIDE POLYSULFURIC ACID ESTER [Concomitant]
     Indication: RASH
     Dosage: UNK
     Route: 062
  10. PANITUMUMAB [Suspect]
     Active Substance: PANITUMUMAB
     Dosage: 4.8 MG/KG, Q2WK
     Route: 041
     Dates: start: 20180903
  11. OXALIPLATIN. [Concomitant]
     Active Substance: OXALIPLATIN
     Dosage: 65 MG/M2, Q2WEEKS
     Route: 041
     Dates: start: 20170731, end: 20170821
  12. OXALIPLATIN. [Concomitant]
     Active Substance: OXALIPLATIN
     Dosage: 50 MG/M2, Q2WEEKS
     Route: 041
     Dates: start: 20180702, end: 20180702
  13. CALCIUM LEVOFOLINATE [Concomitant]
     Active Substance: LEVOLEUCOVORIN CALCIUM
     Dosage: 336 MG, Q2WEEKS
     Route: 041
     Dates: start: 20180730, end: 20180730
  14. FLUOROURACIL. [Concomitant]
     Active Substance: FLUOROURACIL
     Dosage: 3300 MG, Q2WEEKS
     Route: 041
     Dates: start: 20170328, end: 20170703
  15. FLUOROURACIL. [Concomitant]
     Active Substance: FLUOROURACIL
     Dosage: 325 MG, Q2WK
     Route: 041
     Dates: start: 20170731, end: 20170821
  16. FLUOROURACIL. [Concomitant]
     Active Substance: FLUOROURACIL
     Dosage: 325 MG, Q2WK
     Route: 041
     Dates: start: 20170925, end: 20171106
  17. FLUOROURACIL. [Concomitant]
     Active Substance: FLUOROURACIL
     Dosage: 325 MG, Q2WK
     Route: 041
     Dates: start: 20180730, end: 20180730
  18. CALCIUM LEVOFOLINATE [Concomitant]
     Active Substance: LEVOLEUCOVORIN CALCIUM
     Indication: COLON CANCER
     Dosage: 336 MG, Q2WEEKS
     Route: 041
     Dates: start: 20170112, end: 20170126
  19. CALCIUM LEVOFOLINATE [Concomitant]
     Active Substance: LEVOLEUCOVORIN CALCIUM
     Dosage: 336 MG, Q2WEEKS
     Route: 041
     Dates: start: 20171204, end: 20171225
  20. CALCIUM LEVOFOLINATE [Concomitant]
     Active Substance: LEVOLEUCOVORIN CALCIUM
     Dosage: 336 MG, Q2WEEKS
     Route: 041
     Dates: start: 20180903, end: 20180903
  21. FLUOROURACIL. [Concomitant]
     Active Substance: FLUOROURACIL
     Dosage: 325 MG, Q2WK
     Route: 041
     Dates: start: 20180402, end: 20180507
  22. FLUOROURACIL. [Concomitant]
     Active Substance: FLUOROURACIL
     Dosage: 325 MG, Q2WK
     Route: 041
     Dates: start: 20180604, end: 20180702
  23. PANITUMUMAB [Suspect]
     Active Substance: PANITUMUMAB
     Dosage: 370 MG, Q2WK
     Route: 041
     Dates: start: 20180507, end: 20180507
  24. PANITUMUMAB [Suspect]
     Active Substance: PANITUMUMAB
     Dosage: 4.8 MG/KG, Q2WK
     Route: 041
     Dates: start: 20180730, end: 20180730
  25. OXALIPLATIN. [Concomitant]
     Active Substance: OXALIPLATIN
     Dosage: 50 MG/M2, Q2WEEKS
     Route: 041
     Dates: start: 20181015
  26. CALCIUM LEVOFOLINATE [Concomitant]
     Active Substance: LEVOLEUCOVORIN CALCIUM
     Dosage: 336 MG, Q2WEEKS
     Route: 041
     Dates: start: 20170925, end: 20171106
  27. CALCIUM LEVOFOLINATE [Concomitant]
     Active Substance: LEVOLEUCOVORIN CALCIUM
     Dosage: 336 MG, Q2WEEKS
     Route: 041
     Dates: start: 20181015
  28. FLUOROURACIL. [Concomitant]
     Active Substance: FLUOROURACIL
     Dosage: 3300 MG, Q2WEEKS
     Route: 041
     Dates: start: 20171204, end: 20171225
  29. FLUOROURACIL. [Concomitant]
     Active Substance: FLUOROURACIL
     Dosage: 325 MG, Q2WK
     Route: 041
     Dates: start: 20180219, end: 20180305
  30. FLUOROURACIL. [Concomitant]
     Active Substance: FLUOROURACIL
     Dosage: 3300 MG, Q2WEEKS
     Route: 041
     Dates: start: 20180604, end: 20180702
  31. FLUOROURACIL. [Concomitant]
     Active Substance: FLUOROURACIL
     Dosage: 3300 MG/M2, Q2WK
     Route: 041
     Dates: start: 20180903
  32. FLUOROURACIL. [Concomitant]
     Active Substance: FLUOROURACIL
     Dosage: 3300 MG, Q2WEEKS
     Route: 041
     Dates: start: 20180903, end: 20180903
  33. BETAMETHASONE BUTYRATE PROPIONATE [Concomitant]
     Active Substance: BETAMETHASONE BUTYRATE PROPIONATE
     Indication: RASH
     Dosage: UNK
     Route: 062
  34. PANITUMUMAB [Suspect]
     Active Substance: PANITUMUMAB
     Indication: COLON CANCER
     Dosage: 370 MG, Q2WK
     Route: 041
     Dates: start: 20170112, end: 20170126
  35. PANITUMUMAB [Suspect]
     Active Substance: PANITUMUMAB
     Dosage: 370 MG, Q2WK
     Route: 041
     Dates: start: 20170220, end: 20170703
  36. PANITUMUMAB [Suspect]
     Active Substance: PANITUMUMAB
     Dosage: 370 MG, Q2WK
     Route: 041
     Dates: start: 20180219, end: 20180305
  37. CALCIUM LEVOFOLINATE [Concomitant]
     Active Substance: LEVOLEUCOVORIN CALCIUM
     Dosage: 336 MG, Q2WEEKS
     Route: 041
     Dates: start: 20170220, end: 20170703
  38. CALCIUM LEVOFOLINATE [Concomitant]
     Active Substance: LEVOLEUCOVORIN CALCIUM
     Dosage: 336 MG, Q2WEEKS
     Route: 041
     Dates: start: 20180402, end: 20180507
  39. FLUOROURACIL. [Concomitant]
     Active Substance: FLUOROURACIL
     Dosage: 3300 MG, Q2WEEKS
     Route: 041
     Dates: start: 20171204, end: 20171225
  40. FLUOROURACIL. [Concomitant]
     Active Substance: FLUOROURACIL
     Dosage: 3300 MG, Q2WEEKS
     Route: 041
     Dates: start: 20181015
  41. PANITUMUMAB [Suspect]
     Active Substance: PANITUMUMAB
     Dosage: 370 MG, Q2WK
     Route: 041
     Dates: start: 20170925, end: 20171106
  42. PANITUMUMAB [Suspect]
     Active Substance: PANITUMUMAB
     Dosage: 370 MG, Q2WK
     Route: 041
     Dates: start: 20171204, end: 20171225
  43. PANITUMUMAB [Suspect]
     Active Substance: PANITUMUMAB
     Dosage: 370 MG, Q2WK
     Route: 041
     Dates: start: 20180402, end: 20180402
  44. OXALIPLATIN. [Concomitant]
     Active Substance: OXALIPLATIN
     Dosage: 65 MG/M2, Q2WEEKS
     Route: 041
     Dates: start: 20170220, end: 20170703
  45. CALCIUM LEVOFOLINATE [Concomitant]
     Active Substance: LEVOLEUCOVORIN CALCIUM
     Dosage: 336 MG, Q2WEEKS
     Route: 041
     Dates: start: 20180604, end: 20180702
  46. FLUOROURACIL. [Concomitant]
     Active Substance: FLUOROURACIL
     Dosage: 1254 MG/M2, Q2WEEKS
     Route: 041
     Dates: start: 20170220, end: 20170306
  47. FLUOROURACIL. [Concomitant]
     Active Substance: FLUOROURACIL
     Dosage: 3300 MG, Q2WEEKS
     Route: 041
     Dates: start: 20170925, end: 20171106
  48. FLUOROURACIL. [Concomitant]
     Active Substance: FLUOROURACIL
     Dosage: 3300 MG, Q2WEEKS
     Route: 041
     Dates: start: 20180730, end: 20180730
  49. PANITUMUMAB [Suspect]
     Active Substance: PANITUMUMAB
     Dosage: 4.8 MG/KG, Q2WK
     Route: 041
     Dates: start: 20180618, end: 20180702
  50. OXALIPLATIN. [Concomitant]
     Active Substance: OXALIPLATIN
     Indication: COLON CANCER
     Dosage: 140 MG, Q2WEEKS
     Route: 041
     Dates: start: 20170112, end: 20170126
  51. OXALIPLATIN. [Concomitant]
     Active Substance: OXALIPLATIN
     Dosage: 50 MG/M2, Q2WEEKS
     Route: 041
     Dates: start: 20180903, end: 20180903
  52. CALCIUM LEVOFOLINATE [Concomitant]
     Active Substance: LEVOLEUCOVORIN CALCIUM
     Dosage: 336 MG, Q2WEEKS
     Route: 041
     Dates: start: 20180219, end: 20180305
  53. FLUOROURACIL. [Concomitant]
     Active Substance: FLUOROURACIL
     Dosage: 325 MG, Q2WEEKS
     Route: 040
     Dates: start: 20170220, end: 20170703
  54. FLUOROURACIL. [Concomitant]
     Active Substance: FLUOROURACIL
     Dosage: 3300 MG, Q2WEEKS
     Route: 041
     Dates: start: 20180402, end: 20180507
  55. PANITUMUMAB [Suspect]
     Active Substance: PANITUMUMAB
     Dosage: 370 MG, Q2WK
     Route: 041
     Dates: start: 20180122, end: 20180122
  56. CALCIUM LEVOFOLINATE [Concomitant]
     Active Substance: LEVOLEUCOVORIN CALCIUM
     Dosage: 336 MG, Q2WEEKS
     Route: 041
     Dates: start: 20170731, end: 20170821
  57. CALCIUM LEVOFOLINATE [Concomitant]
     Active Substance: LEVOLEUCOVORIN CALCIUM
     Dosage: 336 MG, Q2WEEKS
     Route: 041
     Dates: start: 20180122, end: 20180122
  58. CALCIUM LEVOFOLINATE [Concomitant]
     Active Substance: LEVOLEUCOVORIN CALCIUM
     Dosage: UNK UNK, Q2WEEKS
     Route: 041
     Dates: start: 20180604
  59. CALCIUM LEVOFOLINATE [Concomitant]
     Active Substance: LEVOLEUCOVORIN CALCIUM
     Dosage: 336 MG, Q2WEEKS
     Route: 041
     Dates: start: 20180903
  60. FLUOROURACIL. [Concomitant]
     Active Substance: FLUOROURACIL
     Dosage: 3300 MG, Q2WEEKS
     Route: 041
     Dates: start: 20180219, end: 20180305
  61. FLUOROURACIL. [Concomitant]
     Active Substance: FLUOROURACIL
     Dosage: 325 MG, Q2WK
     Route: 041
     Dates: start: 20180903

REACTIONS (10)
  - Dermatitis acneiform [Recovered/Resolved]
  - Peripheral sensory neuropathy [Recovered/Resolved]
  - Diarrhoea [Recovered/Resolved]
  - Dermatitis acneiform [Recovered/Resolved]
  - Stomatitis [Recovered/Resolved]
  - Hypomagnesaemia [Unknown]
  - Fatigue [Recovered/Resolved]
  - Bile duct stone [Recovering/Resolving]
  - Hypomagnesaemia [Recovered/Resolved]
  - Nausea [Recovered/Resolved]

NARRATIVE: CASE EVENT DATE: 20180604
